FAERS Safety Report 15524723 (Version 1)
Quarter: 2018Q4

REPORT INFORMATION
  Report Type: Spontaneous
  Country: GB (occurrence: GB)
  Receive Date: 20181019
  Receipt Date: 20181019
  Transmission Date: 20190205
  Serious: Yes (Disabling, Other)
  Sender: FDA-Public Use
  Company Number: GB-BAYER-2018-193105

PATIENT
  Age: 39 Year
  Sex: Male
  Weight: 69 kg

DRUGS (1)
  1. CIPROXIN 500 MG [Suspect]
     Active Substance: CIPROFLOXACIN
     Indication: URINARY TRACT INFECTION
     Dosage: 500 MG, UNK
     Route: 048
     Dates: start: 20180120, end: 20180130

REACTIONS (22)
  - Joint stiffness [Not Recovered/Not Resolved]
  - Joint instability [Not Recovered/Not Resolved]
  - Anorectal discomfort [Not Recovered/Not Resolved]
  - Gastrointestinal pain [Not Recovered/Not Resolved]
  - Ear pain [Not Recovered/Not Resolved]
  - Arthralgia [Not Recovered/Not Resolved]
  - Testicular pain [Not Recovered/Not Resolved]
  - Fatigue [Not Recovered/Not Resolved]
  - Seasonal allergy [Recovered/Resolved with Sequelae]
  - Tendonitis [Not Recovered/Not Resolved]
  - Tendon pain [Recovered/Resolved with Sequelae]
  - Hepatic pain [Not Recovered/Not Resolved]
  - Flank pain [Not Recovered/Not Resolved]
  - Penile pain [Not Recovered/Not Resolved]
  - Abdominal discomfort [Recovered/Resolved with Sequelae]
  - Neuralgia [Not Recovered/Not Resolved]
  - Back pain [Not Recovered/Not Resolved]
  - Neuropathy peripheral [Not Recovered/Not Resolved]
  - Renal pain [Not Recovered/Not Resolved]
  - Hypoaesthesia [Recovered/Resolved with Sequelae]
  - Abnormal sensation in eye [Not Recovered/Not Resolved]
  - Food allergy [Not Recovered/Not Resolved]

NARRATIVE: CASE EVENT DATE: 20180125
